FAERS Safety Report 16906714 (Version 3)
Quarter: 2019Q4

REPORT INFORMATION
  Report Type: Report from Study
  Country: None (occurrence: FR)
  Receive Date: 20191011
  Receipt Date: 20191124
  Transmission Date: 20200122
  Serious: Yes (Death)
  Sender: FDA-Public Use
  Company Number: FR-ABBVIE-19K-056-2958471-00

PATIENT
  Age: 68 Year
  Sex: Male

DRUGS (1)
  1. DUODOPA [Suspect]
     Active Substance: CARBIDOPA\LEVODOPA
     Indication: PARKINSON^S DISEASE
     Dosage: STRENGTH (CMP): 20 MG/ML 5 MG/ML  /7 ML/H FROM 7H TO 20H
     Route: 050
     Dates: start: 20160311

REACTIONS (1)
  - Nervous system disorder [Fatal]
